FAERS Safety Report 9197188 (Version 2)
Quarter: 2013Q4

REPORT INFORMATION
  Report Type: Spontaneous
  Country: US (occurrence: US)
  Receive Date: 20130328
  Receipt Date: 20131126
  Transmission Date: 20140711
  Serious: Yes (Other)
  Sender: FDA-Public Use
  Company Number: US-BAYER-2013-038938

PATIENT
  Age: 28 Year
  Sex: Female

DRUGS (7)
  1. YASMIN [Suspect]
  2. OCELLA [Suspect]
  3. YAZ [Suspect]
  4. EFFEXOR [Concomitant]
     Dosage: 150 MG DAILY
     Route: 048
     Dates: start: 20081015
  5. VENLAFAXINE [Concomitant]
     Dosage: 25 MG, HS
     Route: 048
     Dates: start: 20081015
  6. HYDROCODONE [Concomitant]
     Dosage: UNK UNK, PRN
     Route: 048
     Dates: start: 20081015
  7. PERCOCET [Concomitant]
     Dosage: 1-2 EVERY 4-6 HOURS PRN

REACTIONS (5)
  - Cholecystitis acute [None]
  - Gallbladder injury [None]
  - Injury [None]
  - Pain [None]
  - Pain [None]
